FAERS Safety Report 11088051 (Version 1)
Quarter: 2015Q2

REPORT INFORMATION
  Report Type: Spontaneous
  Country: US (occurrence: None)
  Receive Date: 20150501
  Receipt Date: 20150501
  Transmission Date: 20150821
  Serious: Yes (Disabling, Other)
  Sender: FDA-Public Use
  Company Number: None

PATIENT
  Age: 30 Year
  Sex: Male
  Weight: 86.18 kg

DRUGS (1)
  1. CIPRODEX [Suspect]
     Active Substance: CIPROFLOXACIN HYDROCHLORIDE\DEXAMETHASONE
     Indication: EAR INFECTION
     Dosage: 4 DROPS  INTO THE EAR
     Dates: start: 20150313, end: 20150318

REACTIONS (3)
  - Quality of life decreased [None]
  - Sleep disorder due to a general medical condition [None]
  - Tinnitus [None]

NARRATIVE: CASE EVENT DATE: 20150313
